FAERS Safety Report 12233054 (Version 2)
Quarter: 2016Q2

REPORT INFORMATION
  Report Type: Spontaneous
  Country: SE (occurrence: SE)
  Receive Date: 20160403
  Receipt Date: 20160414
  Transmission Date: 20160815
  Serious: Yes (Other)
  Sender: FDA-Public Use
  Company Number: SE-MYLANLABS-2016M1012767

PATIENT

DRUGS (2)
  1. CANDESARTAN [Concomitant]
     Active Substance: CANDESARTAN
     Indication: PRODUCT USED FOR UNKNOWN INDICATION
     Dosage: UNK
  2. ALENDRONAT MYLAN VECKOTABLETT 70 MG TABLETTER [Suspect]
     Active Substance: ALENDRONATE SODIUM
     Indication: OSTEOPOROSIS
     Dosage: UNK

REACTIONS (5)
  - Osteonecrosis [Unknown]
  - Jaw disorder [Unknown]
  - Pharyngeal oedema [Unknown]
  - Dental caries [Not Recovered/Not Resolved]
  - Muscular weakness [Not Recovered/Not Resolved]
